FAERS Safety Report 5020551-9 (Version None)
Quarter: 2006Q2

REPORT INFORMATION
  Report Type: 
  Country: None (occurrence: None)
  Receive Date: 20060606
  Receipt Date: 20060606
  Transmission Date: 20061013
  Serious: Yes (Other)
  Sender: FDA-Public Use
  Company Number: None

PATIENT
  Age: 78 Year
  Sex: Male
  Weight: 86.1834 kg

DRUGS (1)
  1. ZOSYN [Suspect]
     Dosage: 3.375 Q6
     Dates: start: 20050522, end: 20050601

REACTIONS (1)
  - THROMBOCYTOPENIA [None]
